FAERS Safety Report 7012595-2 (Version None)
Quarter: 2010Q3

REPORT INFORMATION
  Report Type: 
  Country: None (occurrence: None)
  Receive Date: 20100924
  Receipt Date: 20100915
  Transmission Date: 20110219
  Serious: Yes (Hospitalization)
  Sender: FDA-Public Use
  Company Number: US-ASTRAZENECA-2010SE43372

PATIENT
  Age: 43 Year
  Sex: Male

DRUGS (3)
  1. NEXIUM [Suspect]
     Route: 048
     Dates: start: 20010101
  2. HUMIRA [Concomitant]
  3. 5 OTHER MEDICATIONS [Concomitant]

REACTIONS (2)
  - HERNIA HIATUS REPAIR [None]
  - RHEUMATOID ARTHRITIS [None]
